FAERS Safety Report 26027620 (Version 2)
Quarter: 2025Q4

REPORT INFORMATION
  Report Type: Spontaneous
  Country: GB (occurrence: GB)
  Receive Date: 20251111
  Receipt Date: 20251125
  Transmission Date: 20260118
  Serious: Yes (Other)
  Sender: GLAXOSMITHKLINE
  Company Number: GB-GSK-GB2025EME139937

PATIENT
  Age: 72 Year
  Sex: Female

DRUGS (3)
  1. DOSTARLIMAB [Suspect]
     Active Substance: DOSTARLIMAB
     Indication: Product used for unknown indication
     Dosage: UNK
  2. CARBOPLATIN [Concomitant]
     Active Substance: CARBOPLATIN
     Indication: Product used for unknown indication
     Dosage: UNK
  3. PACLITAXEL [Concomitant]
     Active Substance: PACLITAXEL
     Indication: Product used for unknown indication
     Dosage: UNK

REACTIONS (8)
  - Ureteral stent insertion [Unknown]
  - Ascites [Unknown]
  - Hydronephrosis [Unknown]
  - Abdominal distension [Unknown]
  - Nausea [Unknown]
  - Vomiting [Unknown]
  - Disease recurrence [Unknown]
  - Peritoneal disorder [Unknown]

NARRATIVE: CASE EVENT DATE: 20250701
